FAERS Safety Report 11697430 (Version 1)
Quarter: 2015Q4

REPORT INFORMATION
  Report Type: Spontaneous
  Country: US (occurrence: US)
  Receive Date: 20151104
  Receipt Date: 20151104
  Transmission Date: 20160304
  Serious: No
  Sender: FDA-Public Use
  Company Number: US-AKRIMAX-TIR-2015-0124

PATIENT
  Age: 55 Year
  Sex: Female
  Weight: 62.2 kg

DRUGS (1)
  1. TIROSINT [Suspect]
     Active Substance: LEVOTHYROXINE SODIUM
     Indication: HYPOTHYROIDISM
     Dosage: ONCE DAILY
     Route: 048
     Dates: start: 201506

REACTIONS (5)
  - Product quality issue [None]
  - Diarrhoea [Unknown]
  - Gastric disorder [None]
  - Incorrect product storage [None]
  - Disease recurrence [None]

NARRATIVE: CASE EVENT DATE: 201506
